FAERS Safety Report 23746285 (Version 3)
Quarter: 2024Q2

REPORT INFORMATION
  Report Type: Other
  Country: CA (occurrence: None)
  Receive Date: 20240416
  Receipt Date: 20240508
  Transmission Date: 20240715
  Serious: Yes (Hospitalization)
  Sender: FDA-Public Use
  Company Number: CA-ROCHE-3301500

PATIENT
  Sex: Female

DRUGS (16)
  1. ACTEMRA [Suspect]
     Active Substance: TOCILIZUMAB
     Indication: Rheumatoid arthritis
     Route: 042
     Dates: start: 20230113, end: 20240220
  2. ACTEMRA [Suspect]
     Active Substance: TOCILIZUMAB
     Route: 042
     Dates: start: 20240319
  3. ALVESCO [Concomitant]
     Active Substance: CICLESONIDE
  4. HYDROCHLOROTHIAZIDE [Concomitant]
     Active Substance: HYDROCHLOROTHIAZIDE
  5. HYDROMORPHONE HYDROCHLORIDE [Concomitant]
     Active Substance: HYDROMORPHONE HYDROCHLORIDE
  6. ALBUTEROL SULFATE [Concomitant]
     Active Substance: ALBUTEROL SULFATE
  7. CALCIUM\VITAMIN D [Concomitant]
     Active Substance: CALCIUM\VITAMIN D
  8. DEXILANT [Concomitant]
     Active Substance: DEXLANSOPRAZOLE
  9. OLODATEROL HYDROCHLORIDE\TIOTROPIUM BROMIDE MONOHYDRATE [Concomitant]
     Active Substance: OLODATEROL HYDROCHLORIDE\TIOTROPIUM BROMIDE MONOHYDRATE
  10. DULOXETINE [Concomitant]
     Active Substance: DULOXETINE
  11. ASPIRIN [Concomitant]
     Active Substance: ASPIRIN
  12. SYNTHROID [Concomitant]
     Active Substance: LEVOTHYROXINE SODIUM
  13. VALSARTAN [Concomitant]
     Active Substance: VALSARTAN
  14. ACETAMINOPHEN [Concomitant]
     Active Substance: ACETAMINOPHEN
  15. RALOXIFENE [Concomitant]
     Active Substance: RALOXIFENE
  16. OXYGEN [Concomitant]
     Active Substance: OXYGEN

REACTIONS (4)
  - Pneumonia [Unknown]
  - Nasopharyngitis [Unknown]
  - Cough [Unknown]
  - Sinusitis [Unknown]
